FAERS Safety Report 13176507 (Version 3)
Quarter: 2017Q3

REPORT INFORMATION
  Report Type: Spontaneous
  Country: DE (occurrence: DE)
  Receive Date: 20170201
  Receipt Date: 20170711
  Transmission Date: 20171127
  Serious: Yes (Hospitalization, Other)
  Sender: FDA-Public Use
  Company Number: DE-SHIRE-DE201701272

PATIENT
  Sex: Male
  Weight: 48 kg

DRUGS (5)
  1. RAMIPRIL. [Concomitant]
     Active Substance: RAMIPRIL
     Indication: HYPERTENSION
     Dosage: 2.5 MG, UNKNOWN
     Route: 065
  2. REVESTIVE [Suspect]
     Active Substance: TEDUGLUTIDE
     Indication: SHORT-BOWEL SYNDROME
     Dosage: UNK, UNKNOWN (POST SEPSIS RELATED PAUSE)
     Route: 058
     Dates: start: 20151111
  3. PANTOZOL [Concomitant]
     Active Substance: PANTOPRAZOLE SODIUM
     Indication: PROPHYLAXIS
     Dosage: 40 MG, UNKNOWN
     Route: 065
  4. REVESTIVE [Suspect]
     Active Substance: TEDUGLUTIDE
     Dosage: UNK, (SHORT TERM PATIENT)
     Route: 058
  5. HYDROCHLOROTHIAZIDE 1A PHARMA [Concomitant]
     Active Substance: HYDROCHLOROTHIAZIDE
     Indication: HYPERTENSION
     Dosage: 12.5 MG, UNKNOWN
     Route: 065

REACTIONS (3)
  - Drug effect decreased [Not Recovered/Not Resolved]
  - Sepsis [Unknown]
  - Cholecystitis chronic [Recovered/Resolved]
